FAERS Safety Report 5276095-2 (Version None)
Quarter: 2007Q1

REPORT INFORMATION
  Report Type: 
  Country: None (occurrence: None)
  Receive Date: 20070326
  Receipt Date: 20070315
  Transmission Date: 20070707
  Serious: Yes (Death, Life-Threatening, Other)
  Sender: FDA-Public Use
  Company Number: HQWYE485520JAN04

PATIENT
  Sex: Female
  Weight: 68 kg

DRUGS (8)
  1. GEMTUZUMAB OZOGAMICIN [Suspect]
     Dosage: 5.2 MG
     Route: 065
     Dates: start: 20031230, end: 20031230
  2. COLISTIN [Concomitant]
     Dosage: DOSAGE NO PROVIDED
     Route: 065
     Dates: start: 20031230, end: 20040108
  3. IDARUBICIN HCL [Suspect]
     Dosage: 14 MG
     Route: 065
     Dates: start: 20031231, end: 20031231
  4. IDARUBICIN HCL [Suspect]
     Dosage: 14 MG
     Route: 065
     Dates: start: 20040102, end: 20040102
  5. IDARUBICIN HCL [Suspect]
     Dosage: 14 MG
     Route: 065
     Dates: start: 20040104, end: 20040104
  6. CO-TRIMOXAZOLE [Concomitant]
     Dosage: DOSAGE NOT PROVIDED
     Route: 065
     Dates: start: 20031230, end: 20040108
  7. CYTARABINE [Suspect]
     Dosage: 150 MG/ STOP DATE NOT PROVIDED
     Route: 065
     Dates: start: 20031231
  8. ETOPOSIDE [Suspect]
     Dosage: 170 MG/ STOP DATE NOT PROVIDED
     Route: 065
     Dates: start: 20031231

REACTIONS (5)
  - ATRIAL FIBRILLATION [None]
  - CANDIDIASIS [None]
  - FLUID RETENTION [None]
  - HEPATIC FUNCTION ABNORMAL [None]
  - LUNG INFILTRATION [None]
